FAERS Safety Report 6385423-6 (Version None)
Quarter: 2009Q4

REPORT INFORMATION
  Report Type: 
  Country: None (occurrence: None)
  Receive Date: 20091002
  Receipt Date: 20080908
  Transmission Date: 20100525
  Serious: No
  Sender: FDA-Public Use
  Company Number: US-ASTRAZENECA-2008UW18502

PATIENT
  Age: 68 Year
  Sex: Female
  Weight: 54.4 kg

DRUGS (3)
  1. ARIMIDEX [Suspect]
     Indication: BREAST CANCER
     Route: 048
     Dates: start: 20030101
  2. CALCIUM [Concomitant]
  3. VIT B12 [Concomitant]

REACTIONS (5)
  - DYSGEUSIA [None]
  - HAEMOGLOBIN DECREASED [None]
  - PAROSMIA [None]
  - VITAMIN B12 DECREASED [None]
  - WEIGHT DECREASED [None]
